FAERS Safety Report 8213448-4 (Version None)
Quarter: 2012Q1

REPORT INFORMATION
  Report Type: 
  Country: None (occurrence: None)
  Receive Date: 20120315
  Receipt Date: 20120306
  Transmission Date: 20120608
  Serious: Yes (Hospitalization)
  Sender: FDA-Public Use
  Company Number: DE-ROCHE-802466

PATIENT
  Sex: Male
  Weight: 75 kg

DRUGS (2)
  1. AVASTIN [Suspect]
     Indication: COLON CANCER
     Route: 042
  2. XELODA [Suspect]
     Indication: COLON CANCER
     Dosage: UNTIL: ,05/JUL/2011
     Route: 048

REACTIONS (2)
  - DEVICE OCCLUSION [None]
  - CHOLANGITIS SUPPURATIVE [None]
